FAERS Safety Report 15364254 (Version 3)
Quarter: 2019Q1

REPORT INFORMATION
  Report Type: Spontaneous
  Country: US (occurrence: US)
  Receive Date: 20180909
  Receipt Date: 20190118
  Transmission Date: 20190417
  Serious: Yes (Hospitalization, Other)
  Sender: FDA-Public Use
  Company Number: US-ELI_LILLY_AND_COMPANY-US201808015305

PATIENT
  Age: 70 Year
  Sex: Male
  Weight: 68.27 kg

DRUGS (7)
  1. EMEND [Concomitant]
     Active Substance: APREPITANT
     Indication: PRODUCT USED FOR UNKNOWN INDICATION
     Dosage: 150 MG, UNKNOWN
     Route: 042
  2. PEPCID AC [Concomitant]
     Active Substance: FAMOTIDINE
     Indication: PREMEDICATION
     Dosage: 20 MG, UNK
     Route: 042
  3. LARTRUVO [Suspect]
     Active Substance: OLARATUMAB
     Indication: METASTASES TO BONE
  4. DEXAMETHASONE. [Concomitant]
     Active Substance: DEXAMETHASONE
     Indication: PREMEDICATION
     Dosage: 10 MG, UNKNOWN
     Route: 042
  5. ALOXI [Concomitant]
     Active Substance: PALONOSETRON HYDROCHLORIDE
     Indication: PRODUCT USED FOR UNKNOWN INDICATION
     Dosage: .25 MG, UNKNOWN
     Route: 042
  6. LARTRUVO [Suspect]
     Active Substance: OLARATUMAB
     Indication: SKIN ANGIOSARCOMA
     Dosage: 176 MG, SINGLE
     Route: 042
     Dates: start: 20180727, end: 20180727
  7. BENADRYL 24 D [Concomitant]
     Active Substance: LORATADINE\PSEUDOEPHEDRINE SULFATE
     Indication: PREMEDICATION
     Dosage: 25 MG, UNKNOWN
     Route: 042

REACTIONS (7)
  - Drug intolerance [Unknown]
  - Hypotension [Recovered/Resolved]
  - Chest pain [Recovered/Resolved]
  - Tachycardia [Recovered/Resolved]
  - Dyspnoea [Recovered/Resolved]
  - Swelling [Recovered/Resolved]
  - Hyperhidrosis [Recovered/Resolved]
